FAERS Safety Report 18562689 (Version 2)
Quarter: 2022Q1

REPORT INFORMATION
  Report Type: Spontaneous
  Country: JP (occurrence: JP)
  Receive Date: 20201201
  Receipt Date: 20220201
  Transmission Date: 20220423
  Serious: Yes (Hospitalization)
  Sender: FDA-Public Use
  Company Number: JP-ONO-2020JP028895

PATIENT
  Age: 66 Year
  Sex: Female

DRUGS (4)
  1. PARSABIV [Suspect]
     Active Substance: ETELCALCETIDE HYDROCHLORIDE
     Indication: Hyperparathyroidism secondary
     Dosage: 15 MILLIGRAM, QWK
     Route: 010
  2. PARSABIV [Suspect]
     Active Substance: ETELCALCETIDE HYDROCHLORIDE
     Dosage: 7.5 MG, QW
     Route: 010
  3. PARSABIV [Suspect]
     Active Substance: ETELCALCETIDE HYDROCHLORIDE
     Dosage: 15 MILLIGRAM, QWK
     Route: 010
  4. CALCITRIOL [Concomitant]
     Active Substance: CALCITRIOL
     Indication: Hyperparathyroidism secondary
     Dosage: 0.5 MICROGRAM, QD
     Route: 065

REACTIONS (5)
  - Hypercalcaemia [Recovering/Resolving]
  - Muscular weakness [Recovering/Resolving]
  - Decreased appetite [Recovering/Resolving]
  - Back pain [Unknown]
  - Low turnover osteopathy [Recovering/Resolving]
